FAERS Safety Report 8503562-8 (Version None)
Quarter: 2012Q3

REPORT INFORMATION
  Report Type: 
  Country: None (occurrence: None)
  Receive Date: 20120711
  Receipt Date: 20120706
  Transmission Date: 20120928
  Serious: Yes (Other)
  Sender: FDA-Public Use
  Company Number: US-PFIZER INC-2012130458

PATIENT
  Sex: Female
  Weight: 100 kg

DRUGS (4)
  1. LIPITOR [Concomitant]
     Dosage: 20 MG, ONCE A DAY
  2. CYMBALTA [Concomitant]
     Dosage: 60 MG, ONCE A DAY
  3. ARTHROTEC [Suspect]
     Indication: ARTHRITIS
     Dosage: UNK, TWICE DAILY
     Route: 048
     Dates: start: 20090101, end: 20120417
  4. ARTHROTEC [Suspect]
     Indication: INFLAMMATION

REACTIONS (3)
  - MUSCULOSKELETAL PAIN [None]
  - HEART RATE IRREGULAR [None]
  - ARTHROPATHY [None]
